FAERS Safety Report 25172418 (Version 1)
Quarter: 2025Q2

REPORT INFORMATION
  Report Type: Spontaneous
  Country: US (occurrence: None)
  Receive Date: 20250407
  Receipt Date: 20250407
  Transmission Date: 20250716
  Serious: Yes (Disabling)
  Sender: FDA-CTU
  Company Number: None

PATIENT
  Sex: Female

DRUGS (1)
  1. DOTTI [Suspect]
     Active Substance: ESTRADIOL
     Indication: Menopausal symptoms
     Dates: start: 20250301, end: 20250401

REACTIONS (3)
  - Therapy non-responder [None]
  - Cognitive disorder [None]
  - Physical disability [None]

NARRATIVE: CASE EVENT DATE: 20250401
